FAERS Safety Report 9162346 (Version 1)
Quarter: 2013Q1

REPORT INFORMATION
  Report Type: Spontaneous
  Country: US (occurrence: None)
  Receive Date: 20130225
  Receipt Date: 20130225
  Transmission Date: 20140127
  Serious: Yes (Disabling, Other)
  Sender: FDA-Public Use
  Company Number: ACO_34358_2013

PATIENT
  Sex: Female

DRUGS (1)
  1. AMPYRA [Suspect]
     Indication: GAIT DISTURBANCE
     Route: 048
     Dates: end: 201302

REACTIONS (5)
  - Fractured sacrum [None]
  - Abasia [None]
  - Movement disorder [None]
  - Therapeutic response unexpected [None]
  - Inappropriate schedule of drug administration [None]
